FAERS Safety Report 16392910 (Version 2)
Quarter: 2019Q3

REPORT INFORMATION
  Report Type: Spontaneous
  Country: US (occurrence: US)
  Receive Date: 20190605
  Receipt Date: 20190704
  Transmission Date: 20191004
  Serious: No
  Sender: FDA-Public Use
  Company Number: US-ASTRAZENECA-2019SE72171

PATIENT
  Age: 67 Year
  Sex: Female
  Weight: 74.8 kg

DRUGS (2)
  1. EPIPEN [Concomitant]
     Active Substance: EPINEPHRINE
     Indication: MULTIPLE ALLERGIES
     Dosage: AS REQUIRED
     Route: 065
  2. PULMICORT FLEXHALER [Suspect]
     Active Substance: BUDESONIDE
     Indication: ASTHMA
     Dosage: 90 MCG 2 PUFFS TWICE PER DAY
     Route: 055
     Dates: start: 2019

REACTIONS (7)
  - Product contamination physical [Unknown]
  - Device malfunction [Unknown]
  - Product dose omission [Unknown]
  - Incorrect dose administered [Unknown]
  - Off label use [Unknown]
  - Wrong technique in device usage process [Unknown]
  - Choking [Unknown]

NARRATIVE: CASE EVENT DATE: 2019
